FAERS Safety Report 7011724-4 (Version None)
Quarter: 2010Q3

REPORT INFORMATION
  Report Type: 
  Country: None (occurrence: None)
  Receive Date: 20100923
  Receipt Date: 20090811
  Transmission Date: 20110219
  Serious: No
  Sender: FDA-Public Use
  Company Number: US-WYE-H10555709

PATIENT
  Sex: Female

DRUGS (2)
  1. PREMARIN [Suspect]
     Route: 048
     Dates: start: 20090501
  2. PREMARIN [Suspect]
     Route: 048

REACTIONS (3)
  - DRUG INEFFECTIVE [None]
  - IRRITABILITY [None]
  - SLEEP DISORDER [None]
